FAERS Safety Report 19731741 (Version 3)
Quarter: 2021Q4

REPORT INFORMATION
  Report Type: Spontaneous
  Country: DE (occurrence: DE)
  Receive Date: 20210820
  Receipt Date: 20211004
  Transmission Date: 20220303
  Serious: Yes (Life-Threatening, Other)
  Sender: FDA-Public Use
  Company Number: NVSC2021DE185856

PATIENT
  Age: 58 Year
  Sex: Female
  Weight: 100 kg

DRUGS (3)
  1. COSENTYX [Suspect]
     Active Substance: SECUKINUMAB
     Indication: Psoriasis
     Dosage: UNK
     Route: 065
     Dates: start: 2017, end: 2021
  2. COSENTYX [Suspect]
     Active Substance: SECUKINUMAB
     Dosage: UNK
     Route: 065
     Dates: start: 2021, end: 2021
  3. COSENTYX [Suspect]
     Active Substance: SECUKINUMAB
     Dosage: UNK
     Route: 065
     Dates: start: 202107

REACTIONS (3)
  - Anal squamous cell carcinoma [Unknown]
  - Anorectal human papilloma virus infection [Unknown]
  - Scar [Unknown]

NARRATIVE: CASE EVENT DATE: 20210629
